FAERS Safety Report 6036396-7 (Version None)
Quarter: 2009Q1

REPORT INFORMATION
  Report Type: 
  Country: None (occurrence: None)
  Receive Date: 20090112
  Receipt Date: 20090105
  Transmission Date: 20090719
  Serious: Yes (Life-Threatening, Hospitalization)
  Sender: FDA-Public Use
  Company Number: 2008AL008099

PATIENT
  Age: 72 Year
  Sex: Male
  Weight: 58.9676 kg

DRUGS (6)
  1. DIGOXIN [Suspect]
     Indication: HEART RATE IRREGULAR
     Dosage: 0.25MG, 1.5TAB DAILY PO/SINCE 2006
     Route: 048
  2. METFORMIN [Concomitant]
  3. ALLERGAN [Concomitant]
  4. ATENOLO [Concomitant]
  5. ALLOPURINOL [Concomitant]
  6. NIFEDIPINE [Concomitant]

REACTIONS (7)
  - BRADYCARDIA [None]
  - CARDIAC FAILURE [None]
  - DYSSTASIA [None]
  - HYPERKALAEMIA [None]
  - MYOCARDIAL INFARCTION [None]
  - THERAPEUTIC AGENT TOXICITY [None]
  - VISION BLURRED [None]
